FAERS Safety Report 25137710 (Version 1)
Quarter: 2025Q1

REPORT INFORMATION
  Report Type: Other
  Country: GB (occurrence: GB)
  Receive Date: 20250329
  Receipt Date: 20250329
  Transmission Date: 20250409
  Serious: Yes (Death, Life-Threatening, Hospitalization, Disabling, Other)
  Sender: MACLEODS
  Company Number: None

PATIENT

DRUGS (2)
  1. ESOMEPRAZOLE [Suspect]
     Active Substance: ESOMEPRAZOLE
     Indication: Diarrhoea
     Route: 048
  2. ESOMEPRAZOLE [Suspect]
     Active Substance: ESOMEPRAZOLE
     Indication: Diarrhoea

REACTIONS (4)
  - Cardiac arrest [Fatal]
  - Arrhythmia [Fatal]
  - Brain hypoxia [Fatal]
  - Product use in unapproved indication [Unknown]
